FAERS Safety Report 18941227 (Version 2)
Quarter: 2021Q2

REPORT INFORMATION
  Report Type: Report from Study
  Country: US (occurrence: US)
  Receive Date: 20210225
  Receipt Date: 20210407
  Transmission Date: 20210717
  Serious: Yes (Hospitalization, Other)
  Sender: FDA-Public Use
  Company Number: US-TAKEDA-2021TUS010881

PATIENT
  Sex: Male

DRUGS (8)
  1. TEDUGLUTIDE [Suspect]
     Active Substance: TEDUGLUTIDE
     Indication: SHORT-BOWEL SYNDROME
     Dosage: 2.75 MILLIGRAM, QD
     Route: 058
     Dates: start: 202010
  2. TEDUGLUTIDE [Suspect]
     Active Substance: TEDUGLUTIDE
     Dosage: 0.27 UNK, QD
     Route: 058
     Dates: start: 20201027
  3. TEDUGLUTIDE [Suspect]
     Active Substance: TEDUGLUTIDE
     Dosage: 0.27 UNK, QD
     Route: 058
     Dates: start: 20201027
  4. TEDUGLUTIDE [Suspect]
     Active Substance: TEDUGLUTIDE
     Indication: SHORT-BOWEL SYNDROME
     Dosage: 2.75 MILLIGRAM, QD
     Route: 058
     Dates: start: 202010
  5. TEDUGLUTIDE [Suspect]
     Active Substance: TEDUGLUTIDE
     Indication: SHORT-BOWEL SYNDROME
     Dosage: 2.75 MILLIGRAM, QD
     Route: 058
     Dates: start: 202010
  6. TEDUGLUTIDE [Suspect]
     Active Substance: TEDUGLUTIDE
     Dosage: 0.27 UNK, QD
     Route: 058
     Dates: start: 20201027
  7. TEDUGLUTIDE [Suspect]
     Active Substance: TEDUGLUTIDE
     Dosage: 0.27 UNK, QD
     Route: 058
     Dates: start: 20201027
  8. TEDUGLUTIDE [Suspect]
     Active Substance: TEDUGLUTIDE
     Indication: SHORT-BOWEL SYNDROME
     Dosage: 2.75 MILLIGRAM, QD
     Route: 058
     Dates: start: 202010

REACTIONS (5)
  - White blood cell count decreased [Unknown]
  - Meningitis [Unknown]
  - Mechanical ventilation [Unknown]
  - Renal failure [Unknown]
  - Infection [Unknown]
